FAERS Safety Report 7392958-6 (Version None)
Quarter: 2011Q1

REPORT INFORMATION
  Report Type: 
  Country: None (occurrence: None)
  Receive Date: 20110330
  Receipt Date: 20110330
  Transmission Date: 20110831
  Serious: Yes (Other)
  Sender: FDA-Public Use
  Company Number: None

PATIENT
  Age: 63 Year
  Sex: Female
  Weight: 83.9154 kg

DRUGS (1)
  1. VANCOMYCIN [Suspect]
     Indication: ANIMAL BITE
     Dosage: 1.5 G/ 500 ML 1 DOSE IV DRIP
     Route: 041
     Dates: start: 20110228

REACTIONS (2)
  - DRUG HYPERSENSITIVITY [None]
  - INFUSION RELATED REACTION [None]
